FAERS Safety Report 10235138 (Version 4)
Quarter: 2014Q3

REPORT INFORMATION
  Report Type: Spontaneous
  Country: JP (occurrence: JP)
  Receive Date: 20140613
  Receipt Date: 20140915
  Transmission Date: 20150326
  Serious: Yes (Death, Hospitalization)
  Sender: FDA-Public Use
  Company Number: JP-VERTEX PHARMACEUTICALS INC-2014-002692

PATIENT
  Age: 64 Year
  Sex: Male

DRUGS (19)
  1. PEGYLATED INTERFERON ALPHA NOS [Suspect]
     Active Substance: PEGINTERFERON ALFA-2A OR PEGINTERFERON ALFA-2B
     Indication: HEPATITIS C
     Dosage: 50 ?G, QW
     Route: 058
     Dates: start: 20130815, end: 20130822
  2. CELLCEPT [Suspect]
     Active Substance: MYCOPHENOLATE MOFETIL\MYCOPHENOLATE MOFETIL HYDROCHLORIDE
     Indication: LIVER TRANSPLANT
     Dosage: 2000 MG, QD
     Route: 048
     Dates: start: 20130424
  3. OTHER THERAPEUTIC PRODUCTS/KENKETSUARUBUMIN [Concomitant]
     Dosage: 2 VIAL QD
     Route: 042
     Dates: start: 20130823, end: 20130825
  4. REBETOL [Suspect]
     Active Substance: RIBAVIRIN
     Indication: HEPATITIS C
     Dosage: 200 MG, QD
     Route: 048
     Dates: start: 20130815, end: 20130830
  5. CIPROXAN [Concomitant]
     Active Substance: CIPROFLOXACIN
     Dosage: 600 MG, UNK
     Route: 042
     Dates: start: 20130819, end: 20130901
  6. OMEPRAL [Concomitant]
     Active Substance: OMEPRAZOLE
     Dosage: 40 MG, UNK
     Route: 042
     Dates: start: 20130818, end: 20130906
  7. VALIXA [Suspect]
     Active Substance: VALGANCICLOVIR
     Indication: CYTOMEGALOVIRUS INFECTION
     Dosage: 900 MG, QD
     Route: 048
     Dates: start: 20130814, end: 20130822
  8. TIENAM [Suspect]
     Active Substance: CILASTATIN SODIUM\IMIPENEM
     Indication: PNEUMONIA BACTERIAL
     Dosage: 1.5 G, QD
     Route: 041
     Dates: start: 20130731, end: 20130819
  9. FOSCARNET SODIUM. [Concomitant]
     Active Substance: FOSCARNET SODIUM
     Dosage: UNK
     Route: 065
     Dates: start: 20130828
  10. VALTREX [Suspect]
     Active Substance: VALACYCLOVIR HYDROCHLORIDE
     Indication: PRODUCT USED FOR UNKNOWN INDICATION
     Dosage: 500 MG, QD
     Route: 048
     Dates: start: 20130826, end: 20130831
  11. TELAVIC [Suspect]
     Active Substance: TELAPREVIR
     Indication: HEPATITIS C
     Dosage: 1500 MG, UNK
     Route: 048
     Dates: start: 20130815, end: 20130830
  12. PROGRAF [Suspect]
     Active Substance: TACROLIMUS\TACROLIMUS ANHYDROUS
     Indication: LIVER TRANSPLANT
     Dosage: 0714 MG, UNK
     Route: 048
     Dates: start: 20130423
  13. CELLCEPT [Suspect]
     Active Substance: MYCOPHENOLATE MOFETIL\MYCOPHENOLATE MOFETIL HYDROCHLORIDE
     Dosage: 1000 MG, QD
     Route: 048
     Dates: start: 20130826, end: 20130829
  14. AMPHOTERICIN B. [Concomitant]
     Active Substance: AMPHOTERICIN B
     Dosage: UNK
     Route: 065
     Dates: start: 20130829, end: 20130906
  15. OTHER THERAPEUTIC PRODUCTS/GUROBURINSEIZAI [Concomitant]
     Route: 065
  16. FUNGUARD [Concomitant]
     Active Substance: MICAFUNGIN SODIUM
     Dosage: 150 MG, UNK
     Route: 042
     Dates: start: 20130822, end: 20130828
  17. PREDONINE [Concomitant]
     Active Substance: PREDNISOLONE\PREDNISOLONE ACETATE\PREDNISOLONE SODIUM SUCCINATE
     Dosage: 10 MG, UNK
     Route: 042
     Dates: start: 20130822, end: 20130901
  18. PRIMPERAN [Concomitant]
     Active Substance: METOCLOPRAMIDE HYDROCHLORIDE
     Dosage: 20 MG, UNK
     Route: 042
     Dates: start: 20130818, end: 20130901
  19. BAKTAR [Concomitant]
     Active Substance: SULFAMETHOXAZOLE\TRIMETHOPRIM
     Dosage: 0.5 DF, QD
     Route: 048
     Dates: start: 20130426, end: 20130823

REACTIONS (3)
  - Blood creatinine increased [Unknown]
  - Pancytopenia [Fatal]
  - Septic shock [Fatal]

NARRATIVE: CASE EVENT DATE: 20130824
